FAERS Safety Report 8776979 (Version 5)
Quarter: 2014Q4

REPORT INFORMATION
  Report Type: Report from Study
  Country: JP (occurrence: JP)
  Receive Date: 20120911
  Receipt Date: 20141229
  Transmission Date: 20150529
  Serious: Yes (Other)
  Sender: FDA-Public Use
  Company Number: JP-GLAXOSMITHKLINE-B0826394A

PATIENT
  Age: 79 Year
  Sex: Male
  Weight: 55 kg

DRUGS (9)
  1. REBAMIPIDE [Concomitant]
     Active Substance: REBAMIPIDE
     Indication: PROPHYLAXIS AGAINST GASTROINTESTINAL ULCER
     Dosage: 100 MG, TID
     Route: 048
     Dates: start: 20120126
  2. URIEF [Concomitant]
     Active Substance: SILODOSIN
     Dosage: 2 MG, BID
     Route: 048
     Dates: start: 20120126
  3. ATOVAQUONE. [Suspect]
     Active Substance: ATOVAQUONE
     Indication: ANTIFUNGAL PROPHYLAXIS
     Dosage: 1500 MG, QD
     Route: 048
     Dates: start: 20120611, end: 20120705
  4. LANSOPRAZOLE-OD [Concomitant]
     Active Substance: LANSOPRAZOLE
     Indication: PROPHYLAXIS AGAINST GASTROINTESTINAL ULCER
     Route: 048
     Dates: start: 20120126
  5. XYZAL [Concomitant]
     Active Substance: LEVOCETIRIZINE DIHYDROCHLORIDE
     Route: 048
     Dates: start: 20120126
  6. MUCOSOLATE L [Concomitant]
     Indication: GRANULOMATOSIS WITH POLYANGIITIS
     Dosage: 45 MG, QD
     Route: 048
     Dates: start: 20120126
  7. PREDONINE [Concomitant]
     Active Substance: PREDNISOLONE\PREDNISOLONE ACETATE\PREDNISOLONE SODIUM SUCCINATE
     Indication: GRANULOMATOSIS WITH POLYANGIITIS
     Dosage: 5 MG, QD
     Route: 048
     Dates: start: 20120126
  8. RHEUMATREX [Concomitant]
     Active Substance: METHOTREXATE SODIUM
     Indication: GRANULOMATOSIS WITH POLYANGIITIS
     Dosage: 8 MG, WE
     Route: 048
     Dates: start: 20120126
  9. FOLIAMIN [Concomitant]
     Active Substance: FOLIC ACID
     Indication: PROPHYLAXIS
     Dosage: 5 MG, WE
     Route: 048
     Dates: start: 20120126

REACTIONS (1)
  - Hyperbilirubinaemia [Recovered/Resolved]

NARRATIVE: CASE EVENT DATE: 20120705
